FAERS Safety Report 12673140 (Version 1)
Quarter: 2016Q3

REPORT INFORMATION
  Report Type: Spontaneous
  Country: GB (occurrence: GB)
  Receive Date: 20160822
  Receipt Date: 20160822
  Transmission Date: 20161109
  Serious: Yes (Hospitalization, Other)
  Sender: FDA-Public Use
  Company Number: GB-TEVA-684588ACC

PATIENT
  Age: 76 Year
  Sex: Male
  Weight: 82 kg

DRUGS (15)
  1. BISOPROLOL [Concomitant]
     Active Substance: BISOPROLOL
     Dosage: 1 DOSAGE FORMS DAILY;
     Dates: start: 20160606
  2. SOLIFENACIN [Concomitant]
     Active Substance: SOLIFENACIN
     Dosage: 1 DOSAGE FORMS DAILY;
     Dates: start: 20151221
  3. WARFARIN SODIUM. [Concomitant]
     Active Substance: WARFARIN SODIUM
     Dates: start: 20151221
  4. BICALUTAMIDE. [Concomitant]
     Active Substance: BICALUTAMIDE
     Dosage: 1 DOSAGE FORMS DAILY;
     Dates: start: 20151221
  5. DIGOXIN. [Concomitant]
     Active Substance: DIGOXIN
     Dosage: 1 DOSAGE FORMS DAILY;
     Dates: start: 20151221
  6. RAMIPRIL. [Suspect]
     Active Substance: RAMIPRIL
  7. ACICLOVIR [Concomitant]
     Active Substance: ACYCLOVIR
     Dosage: 2 DOSAGE FORMS DAILY; 2 DOSAGE FORMS, DISPERSED IN WATER
     Dates: start: 20151221
  8. CALCIUM CARBONATE. [Concomitant]
     Active Substance: CALCIUM CARBONATE
     Dosage: 2 DOSAGE FORMS DAILY;
     Dates: start: 20151221
  9. BUDESONIDE. [Concomitant]
     Active Substance: BUDESONIDE
     Dosage: AS DIRECTED BY HOSPITAL
     Dates: start: 20151223, end: 20160526
  10. FUROSEMIDE. [Concomitant]
     Active Substance: FUROSEMIDE
     Dosage: 1 DOSAGE FORMS DAILY; EACH MORNING
     Dates: start: 20160606
  11. TAMOXIFEN [Concomitant]
     Active Substance: TAMOXIFEN
     Dosage: .1429 DOSAGE FORMS DAILY;
     Dates: start: 20151221
  12. RAMIPRIL. [Suspect]
     Active Substance: RAMIPRIL
     Dates: start: 20160630
  13. ASACOL [Concomitant]
     Active Substance: MESALAMINE
     Dosage: 4 GRAM DAILY;
     Dates: start: 20160321
  14. NITROFURANTOIN. [Concomitant]
     Active Substance: NITROFURANTOIN
     Dosage: 200 MILLIGRAM DAILY; 1/2 A TABLET
     Dates: start: 20160630, end: 20160707
  15. TRIMETHOPRIM. [Concomitant]
     Active Substance: TRIMETHOPRIM
     Dosage: 2 DOSAGE FORMS DAILY;
     Dates: start: 20160628, end: 20160701

REACTIONS (2)
  - Oropharyngeal pain [Unknown]
  - Oropharyngeal swelling [Recovering/Resolving]

NARRATIVE: CASE EVENT DATE: 20160725
